FAERS Safety Report 10643254 (Version 1)
Quarter: 2014Q4

REPORT INFORMATION
  Report Type: Spontaneous
  Country: US (occurrence: None)
  Receive Date: 20141124
  Receipt Date: 20141124
  Transmission Date: 20150529
  Serious: Yes (Disabling, Other)
  Sender: FDA-Public Use
  Company Number: 1887706

PATIENT
  Sex: Female

DRUGS (1)
  1. BUPIVACAINE HCL [Suspect]
     Active Substance: BUPIVACAINE HYDROCHLORIDE
     Indication: LOCAL ANAESTHESIA
     Dates: start: 20110804

REACTIONS (4)
  - Drug effect prolonged [None]
  - Nerve injury [None]
  - Expired product administered [None]
  - Anaesthetic complication [None]

NARRATIVE: CASE EVENT DATE: 20110804
